FAERS Safety Report 17816417 (Version 8)
Quarter: 2022Q2

REPORT INFORMATION
  Report Type: Spontaneous
  Country: US (occurrence: US)
  Receive Date: 20200522
  Receipt Date: 20220624
  Transmission Date: 20220721
  Serious: Yes (Other)
  Sender: FDA-Public Use
  Company Number: US-PFIZER INC-2020190253

PATIENT
  Age: 84 Year
  Sex: Female
  Weight: 47.63 kg

DRUGS (13)
  1. PREMARIN [Suspect]
     Active Substance: ESTROGENS, CONJUGATED
     Indication: Hysterectomy
     Dosage: 0.625 MG
  2. PREMARIN [Suspect]
     Active Substance: ESTROGENS, CONJUGATED
     Dosage: 0.625 MG, 1X/DAY
  3. PREMARIN [Suspect]
     Active Substance: ESTROGENS, CONJUGATED
     Dosage: UNK
  4. AMLODIPINE [Concomitant]
     Active Substance: AMLODIPINE BESYLATE
     Indication: Hypertension
     Dosage: 5 MG, 1X/DAY
  5. HYDROCHLOROTHIAZIDE [Concomitant]
     Active Substance: HYDROCHLOROTHIAZIDE
     Indication: Hypertension
     Dosage: 25 MG, 1X/DAY
  6. VITAMIN D NOS [Concomitant]
     Active Substance: VITAMIN D NOS
     Indication: Hypovitaminosis
     Dosage: UNK
  7. VITAMIN B12 [Concomitant]
     Active Substance: CYANOCOBALAMIN
     Indication: Iron deficiency
     Dosage: UNK(EVERY 5 WEEKS)
  8. VITAMIN B12 [Concomitant]
     Active Substance: CYANOCOBALAMIN
     Dosage: UNK, MONTHLY (ONCE A MONTH)
  9. GABAPENTIN [Concomitant]
     Active Substance: GABAPENTIN
     Dosage: UNK
  10. CLARITHROMYCIN [Concomitant]
     Active Substance: CLARITHROMYCIN
     Indication: Urinary tract infection
     Dosage: 100 MG, 1X/DAY
  11. ADVIL [Concomitant]
     Active Substance: IBUPROFEN
     Dosage: UNK
  12. ASPIRIN [Concomitant]
     Active Substance: ASPIRIN
     Dosage: UNK
  13. LEVOTHYROXINE [Concomitant]
     Active Substance: LEVOTHYROXINE
     Dosage: UNK

REACTIONS (15)
  - Hand fracture [Unknown]
  - Fall [Unknown]
  - Restlessness [Unknown]
  - Insomnia [Unknown]
  - Back pain [Unknown]
  - Asthenia [Unknown]
  - Feeling abnormal [Unknown]
  - Night sweats [Unknown]
  - Feeling abnormal [Unknown]
  - Disorientation [Unknown]
  - Crying [Unknown]
  - Hair injury [Unknown]
  - Alopecia [Unknown]
  - Malaise [Unknown]
  - Intentional product misuse [Unknown]
